FAERS Safety Report 8180808-X (Version None)
Quarter: 2012Q1

REPORT INFORMATION
  Report Type: 
  Country: None (occurrence: None)
  Receive Date: 20120302
  Receipt Date: 20120223
  Transmission Date: 20120608
  Serious: Yes (Other)
  Sender: FDA-Public Use
  Company Number: IE-BAYER-2012-017658

PATIENT
  Sex: Female

DRUGS (1)
  1. MICROLITE [Suspect]
     Indication: CONTRACEPTION
     Dosage: UNK
     Dates: start: 20120217

REACTIONS (3)
  - COELIAC DISEASE [None]
  - ABDOMINAL DISTENSION [None]
  - ABDOMINAL PAIN UPPER [None]
